FAERS Safety Report 23486586 (Version 1)
Quarter: 2024Q1

REPORT INFORMATION
  Report Type: Spontaneous
  Country: CA (occurrence: None)
  Receive Date: 20240206
  Receipt Date: 20240206
  Transmission Date: 20240410
  Serious: Yes (Hospitalization)
  Sender: FDA-Public Use
  Company Number: CA-ROCHE-3502809

PATIENT
  Age: 73 Year
  Sex: Female
  Weight: 64 kg

DRUGS (5)
  1. RITUXIMAB [Suspect]
     Active Substance: RITUXIMAB
     Indication: Follicular lymphoma
     Route: 042
  2. IBRUTINIB [Suspect]
     Active Substance: IBRUTINIB
     Indication: Follicular lymphoma
     Route: 048
  3. PREDNISONE [Concomitant]
     Active Substance: PREDNISONE
     Indication: Pneumonia
     Route: 048
  4. SULFAMETHOXAZOLE\TRIMETHOPRIM [Concomitant]
     Active Substance: SULFAMETHOXAZOLE\TRIMETHOPRIM
     Route: 048
  5. VALACYCLOVIR HYDROCHLORIDE [Concomitant]
     Active Substance: VALACYCLOVIR HYDROCHLORIDE
     Route: 048

REACTIONS (1)
  - Pulmonary embolism [Not Recovered/Not Resolved]
